FAERS Safety Report 8683854 (Version 2)
Quarter: 2012Q4

REPORT INFORMATION
  Report Type: 
  Country: US (occurrence: US)
  Receive Date: 20120726
  Receipt Date: 20120920
  Transmission Date: 20130627
  Serious: Yes (Other)
  Sender: FDA-Public Use
  Company Number: US-PFIZER INC-2012179356

PATIENT
  Age: 65 Year
  Sex: Female

DRUGS (1)
  1. ARTHROTEC [Suspect]
     Dosage: 50 mg, 2x/day
     Route: 048

REACTIONS (1)
  - Breast cancer [Unknown]
